FAERS Safety Report 9324585 (Version 1)
Quarter: 2013Q2

REPORT INFORMATION
  Report Type: Spontaneous
  Country: GB (occurrence: GB)
  Receive Date: 20130603
  Receipt Date: 20130603
  Transmission Date: 20140414
  Serious: Yes (Other)
  Sender: FDA-Public Use
  Company Number: GB-UCBSA-086933

PATIENT
  Age: 5 Year
  Sex: Female

DRUGS (2)
  1. LEVETIRACETAM [Suspect]
     Indication: LENNOX-GASTAUT SYNDROME
     Dosage: DAILY DOSE: 300 (UNITS UNSPECIFIED)
  2. SODIUM VALPROATE [Concomitant]
     Dosage: DAILY DOSE:600 (UNITS UNSPECIFIED)

REACTIONS (2)
  - Epilepsy [Unknown]
  - Drug ineffective [Unknown]
